FAERS Safety Report 12757252 (Version 1)
Quarter: 2016Q3

REPORT INFORMATION
  Report Type: Report from Study
  Country: US (occurrence: US)
  Receive Date: 20160919
  Receipt Date: 20160919
  Transmission Date: 20161109
  Serious: Yes (Hospitalization, Other)
  Sender: FDA-Public Use
  Company Number: US-AMGEN-USASL2016123479

PATIENT
  Sex: Female

DRUGS (1)
  1. REPATHA [Suspect]
     Active Substance: EVOLOCUMAB
     Indication: BLOOD CHOLESTEROL INCREASED
     Dosage: 140 MG, Q2WK
     Route: 065

REACTIONS (15)
  - Diabetes mellitus [Unknown]
  - Renal impairment [Unknown]
  - Myocardial infarction [Unknown]
  - Angioplasty [Unknown]
  - Blood triglycerides increased [Unknown]
  - Injection site bruising [Unknown]
  - Injection site haemorrhage [Unknown]
  - High density lipoprotein abnormal [Unknown]
  - Blood cholesterol abnormal [Unknown]
  - Coronary artery occlusion [Unknown]
  - Blood sodium decreased [Unknown]
  - Platelet count decreased [Unknown]
  - Jaw disorder [Unknown]
  - Urinary tract infection [Unknown]
  - Pain in jaw [Unknown]

NARRATIVE: CASE EVENT DATE: 201603
